FAERS Safety Report 5482019-5 (Version None)
Quarter: 2007Q4

REPORT INFORMATION
  Report Type: 
  Country: None (occurrence: None)
  Receive Date: 20071005
  Receipt Date: 20071001
  Transmission Date: 20080405
  Serious: Yes (Other)
  Sender: FDA-Public Use
  Company Number: CHPA2007US08790

PATIENT
  Age: 2 Year
  Sex: Male
  Weight: 14.1 kg

DRUGS (3)
  1. TRIAMINIC NIGHT TIME COLD + COUGH (NCH)(DIPHENHYDRAMINE, PHENYLEPHRINE [Suspect]
     Indication: INCORRECT DOSE ADMINISTERED
     Dosage: ONCE/SINGLE, ORAL; 1 TSP, PRN, ORAL
     Route: 048
     Dates: start: 20070817, end: 20070817
  2. TRIAMINIC NIGHT TIME COLD + COUGH (NCH)(DIPHENHYDRAMINE, PHENYLEPHRINE [Suspect]
     Indication: INCORRECT DOSE ADMINISTERED
     Dosage: ONCE/SINGLE, ORAL; 1 TSP, PRN, ORAL
     Route: 048
     Dates: start: 20061101
  3. TRIAMINIC NIGHT TIME COLD + COUGH (NCH) [Suspect]

REACTIONS (8)
  - ACCIDENTAL DRUG INTAKE BY CHILD [None]
  - ACCIDENTAL OVERDOSE [None]
  - CONSTIPATION [None]
  - DRUG TOXICITY [None]
  - DYSARTHRIA [None]
  - FAILURE OF CHILD RESISTANT MECHANISM FOR PHARMACEUTICAL PRODUCT [None]
  - LETHARGY [None]
  - PHARMACEUTICAL PRODUCT COMPLAINT [None]
